FAERS Safety Report 6696469-2 (Version None)
Quarter: 2010Q2

REPORT INFORMATION
  Report Type: 
  Country: None (occurrence: None)
  Receive Date: 20100426
  Receipt Date: 20100415
  Transmission Date: 20101027
  Serious: Yes (Hospitalization)
  Sender: FDA-Public Use
  Company Number: US-JNJFOC-20100404461

PATIENT
  Sex: Male
  Weight: 68.95 kg

DRUGS (12)
  1. DURAGESIC-100 [Suspect]
     Indication: PAIN IN EXTREMITY
     Route: 062
  2. DURAGESIC-100 [Suspect]
     Indication: NECK PAIN
     Route: 062
  3. DURAGESIC-100 [Suspect]
     Indication: BACK PAIN
     Route: 062
  4. DURAGESIC-100 [Suspect]
     Route: 062
  5. DURAGESIC-100 [Suspect]
     Route: 062
  6. DURAGESIC-100 [Suspect]
     Route: 062
  7. DIAZEPAM [Concomitant]
     Indication: MUSCLE SPASMS
     Route: 048
  8. OXYCODONE [Concomitant]
     Indication: PAIN
     Route: 048
  9. BACLOFEN [Concomitant]
     Indication: MUSCLE RELAXANT THERAPY
     Route: 048
  10. KLONOPIN [Concomitant]
     Indication: PANIC ATTACK
     Dosage: 30MG/CAPSULE/20MG+10MG/DAY
     Route: 048
  11. FLEXERIL [Concomitant]
     Indication: MUSCLE RELAXANT THERAPY
     Route: 048
  12. DOC-Q-LACE [Concomitant]
     Indication: CONSTIPATION
     Route: 048

REACTIONS (4)
  - BACK PAIN [None]
  - DRUG ADMINISTERED AT INAPPROPRIATE SITE [None]
  - PRODUCT ADHESION ISSUE [None]
  - WRONG TECHNIQUE IN DRUG USAGE PROCESS [None]
